FAERS Safety Report 22068109 (Version 1)
Quarter: 2023Q1

REPORT INFORMATION
  Report Type: Spontaneous
  Country: CN (occurrence: None)
  Receive Date: 20230307
  Receipt Date: 20230307
  Transmission Date: 20230418
  Serious: Yes (Death)
  Sender: FDA-Public Use
  Company Number: 2023A053133

PATIENT
  Age: 33734 Day
  Sex: Male
  Weight: 66 kg

DRUGS (6)
  1. ESOMEPRAZOLE SODIUM [Suspect]
     Active Substance: ESOMEPRAZOLE SODIUM
     Indication: Gastrooesophageal reflux disease
     Route: 042
     Dates: start: 20230212, end: 20230214
  2. ESOMEPRAZOLE SODIUM [Suspect]
     Active Substance: ESOMEPRAZOLE SODIUM
     Indication: Gastrooesophageal reflux disease
     Route: 042
     Dates: start: 20230219, end: 20230223
  3. ESOMEPRAZOLE MAGNESIUM [Suspect]
     Active Substance: ESOMEPRAZOLE MAGNESIUM
     Indication: Gastrooesophageal reflux disease
     Route: 048
     Dates: start: 20230215, end: 20230219
  4. SODIUM CHLORIDE [Concomitant]
     Active Substance: SODIUM CHLORIDE
     Dosage: INJECTION 50ML VIA CONTINUOUS PUMPING IN AT A RATE OF 5ML/MIN
  5. SODIUM CHLORIDE [Concomitant]
     Active Substance: SODIUM CHLORIDE
     Dosage: 100ML VIA INTRAVENOUS DRIP Q12H
     Route: 041
  6. SODIUM CHLORIDE [Concomitant]
     Active Substance: SODIUM CHLORIDE
     Dosage: 50ML VIA INTRAVENOUS DRIP Q12H
     Route: 041

REACTIONS (5)
  - Myelosuppression [Fatal]
  - Cerebral infarction [Fatal]
  - Renal failure [Fatal]
  - Multiple organ dysfunction syndrome [Fatal]
  - Circulatory collapse [Fatal]

NARRATIVE: CASE EVENT DATE: 20230219
